FAERS Safety Report 24338583 (Version 1)
Quarter: 2024Q3

REPORT INFORMATION
  Report Type: Spontaneous
  Country: NL (occurrence: NL)
  Receive Date: 20240919
  Receipt Date: 20240919
  Transmission Date: 20241016
  Serious: Yes (Other)
  Sender: TEVA
  Company Number: None

PATIENT
  Age: 62 Year
  Sex: Female
  Weight: 71 kg

DRUGS (2)
  1. COLCHICINE [Suspect]
     Active Substance: COLCHICINE
     Indication: Chondrocalcinosis
     Dosage: 1 PIECE TWICE A DAY,  / BRAND NAME NOT SPECIFIED
     Route: 065
     Dates: start: 20240708
  2. PREDNISOLONE [Suspect]
     Active Substance: PREDNISOLONE
     Indication: Chondrocalcinosis
     Dosage: / BRAND NAME NOT SPECIFIED
     Route: 065
     Dates: start: 20240710

REACTIONS (1)
  - Neuropathy peripheral [Recovering/Resolving]
